FAERS Safety Report 21403914 (Version 1)
Quarter: 2022Q4

REPORT INFORMATION
  Report Type: Spontaneous
  Country: FR (occurrence: FR)
  Receive Date: 20221003
  Receipt Date: 20221003
  Transmission Date: 20230113
  Serious: Yes (Life-Threatening, Other)
  Sender: FDA-Public Use
  Company Number: None

PATIENT
  Age: 1 Day
  Sex: Male
  Weight: 3.71 kg

DRUGS (2)
  1. ALPROSTADIL [Suspect]
     Active Substance: ALPROSTADIL
     Dosage: UNK
     Route: 042
     Dates: start: 202208, end: 202208
  2. NALBUPHINE HYDROCHLORIDE [Suspect]
     Active Substance: NALBUPHINE HYDROCHLORIDE
     Dosage: UNK
     Route: 042
     Dates: start: 202208, end: 202208

REACTIONS (1)
  - Infantile apnoea [Recovered/Resolved]

NARRATIVE: CASE EVENT DATE: 20220801
